FAERS Safety Report 7344510-6 (Version None)
Quarter: 2011Q1

REPORT INFORMATION
  Report Type: 
  Country: None (occurrence: None)
  Receive Date: 20110308
  Receipt Date: 20110308
  Transmission Date: 20110831
  Serious: Yes (Hospitalization)
  Sender: FDA-Public Use
  Company Number: None

PATIENT
  Age: 46 Year
  Sex: Female
  Weight: 58.9676 kg

DRUGS (1)
  1. AMPYRA [Suspect]
     Indication: GOUT
     Dosage: AMPYRA 10MG 8 12 PO
     Route: 048
     Dates: start: 20100802, end: 20100809

REACTIONS (1)
  - CONVULSION [None]
